FAERS Safety Report 9764135 (Version 2)
Quarter: 2013Q4

REPORT INFORMATION
  Report Type: Spontaneous
  Country: US (occurrence: US)
  Receive Date: 20131216
  Receipt Date: 20131218
  Transmission Date: 20140711
  Serious: No
  Sender: FDA-Public Use
  Company Number: US-BIOGENIDEC-2013BI115826

PATIENT
  Age: 52 Year
  Sex: Male

DRUGS (4)
  1. TECFIDERA [Suspect]
     Indication: MULTIPLE SCLEROSIS
     Route: 048
     Dates: start: 20131010
  2. TECFIDERA [Suspect]
     Indication: MULTIPLE SCLEROSIS
     Route: 048
     Dates: start: 201311, end: 201312
  3. TECFIDERA [Suspect]
     Indication: MULTIPLE SCLEROSIS
     Route: 048
     Dates: start: 201312
  4. MOTRIN [Concomitant]

REACTIONS (7)
  - Gastrooesophageal reflux disease [Recovered/Resolved]
  - Decreased appetite [Not Recovered/Not Resolved]
  - Influenza like illness [Recovered/Resolved]
  - Pain [Unknown]
  - Underdose [Unknown]
  - Flushing [Not Recovered/Not Resolved]
  - Nausea [Unknown]
